FAERS Safety Report 19365778 (Version 1)
Quarter: 2021Q2

REPORT INFORMATION
  Report Type: Spontaneous
  Country: JP (occurrence: JP)
  Receive Date: 20210602
  Receipt Date: 20210602
  Transmission Date: 20210717
  Serious: Yes (Death)
  Sender: FDA-Public Use
  Company Number: JP-ASTRAZENECA-2021A476360

PATIENT
  Sex: Male

DRUGS (1)
  1. IMFINZI [Suspect]
     Active Substance: DURVALUMAB
     Indication: NON-SMALL CELL LUNG CANCER
     Dosage: UNKNOWN
     Route: 041
     Dates: start: 202003, end: 202101

REACTIONS (2)
  - Malaise [Unknown]
  - Cholangitis [Fatal]

NARRATIVE: CASE EVENT DATE: 2021
